FAERS Safety Report 6162957-0 (Version None)
Quarter: 2009Q2

REPORT INFORMATION
  Report Type: 
  Country: None (occurrence: None)
  Receive Date: 20090420
  Receipt Date: 20090409
  Transmission Date: 20091009
  Serious: Yes (Disabling)
  Sender: FDA-Public Use
  Company Number: 241339

PATIENT
  Sex: Male
  Weight: 79.3795 kg

DRUGS (10)
  1. GENTAMICIN SULFATE [Suspect]
     Indication: ENDOCARDITIS
     Dosage: 80 MG, EVERY 12 HOURS, INTRAVENOUS DRIP; 60 MG (EVERY 12 HOURS) INTRAVENOUS DRIP
     Route: 041
     Dates: start: 20080201, end: 20080101
  2. GENTAMICIN SULFATE [Suspect]
     Indication: ENDOCARDITIS
     Dosage: 80 MG, EVERY 12 HOURS, INTRAVENOUS DRIP; 60 MG (EVERY 12 HOURS) INTRAVENOUS DRIP
     Route: 041
     Dates: start: 20080101, end: 20080301
  3. AMPICILLIN [Concomitant]
  4. REMERON [Concomitant]
  5. LACTOBACILLUS [Concomitant]
  6. LEXAPRO [Concomitant]
  7. NEXIUM [Concomitant]
  8. LISINOPRIL [Concomitant]
  9. LOPRESSOR [Concomitant]
  10. FLOMAX [Concomitant]

REACTIONS (5)
  - AMNESIA [None]
  - BALANCE DISORDER [None]
  - INNER EAR DISORDER [None]
  - MALAISE [None]
  - MOBILITY DECREASED [None]
